FAERS Safety Report 17946640 (Version 2)
Quarter: 2020Q3

REPORT INFORMATION
  Report Type: Spontaneous
  Country: FR (occurrence: FR)
  Receive Date: 20200626
  Receipt Date: 20200824
  Transmission Date: 20201103
  Serious: Yes (Hospitalization, Other)
  Sender: FDA-Public Use
  Company Number: FR-TAKEDA-2020TEU005914

PATIENT
  Age: 48 Year
  Sex: Male
  Weight: 98 kg

DRUGS (2)
  1. COLCHICINE. [Suspect]
     Active Substance: COLCHICINE
     Indication: POLYARTHRITIS
     Dosage: UNK
     Route: 065
  2. ALLOPURINOL. [Concomitant]
     Active Substance: ALLOPURINOL
     Indication: POLYARTHRITIS
     Dosage: 200 MILLIGRAM, QD

REACTIONS (11)
  - Anaemia [Unknown]
  - Renal impairment [Unknown]
  - Thrombocytopenia [Unknown]
  - Off label use [Unknown]
  - Alopecia [Unknown]
  - Toxicity to various agents [Unknown]
  - Respiratory disorder [Unknown]
  - Acute hepatic failure [Unknown]
  - Metabolic acidosis [Unknown]
  - Neurological decompensation [Unknown]
  - Leukopenia [Unknown]
